FAERS Safety Report 20350751 (Version 1)
Quarter: 2022Q1

REPORT INFORMATION
  Report Type: Spontaneous
  Country: US (occurrence: None)
  Receive Date: 20220117
  Receipt Date: 20220117
  Transmission Date: 20220423
  Serious: Yes (Other)
  Sender: FDA-Public Use
  Company Number: None

PATIENT
  Age: 67 Year
  Sex: Female
  Weight: 65.25 kg

DRUGS (10)
  1. XARELTO [Suspect]
     Active Substance: RIVAROXABAN
     Indication: Thrombosis prophylaxis
     Dosage: OTHER QUANTITY : 90 TABLET(S);?FREQUENCY : AT BEDTIME;?
     Route: 048
     Dates: start: 20200513, end: 20200617
  2. JANTOVEN [Concomitant]
     Active Substance: WARFARIN SODIUM
  3. WELLBUTRIN [Concomitant]
     Active Substance: BUPROPION HYDROCHLORIDE
  4. SPIRONOLACTONE [Concomitant]
     Active Substance: SPIRONOLACTONE
  5. OXYCODONE [Concomitant]
     Active Substance: OXYCODONE
  6. TRAMADOL [Concomitant]
     Active Substance: TRAMADOL
  7. W HS [Concomitant]
  8. VITAMIN K [Concomitant]
     Active Substance: PHYTONADIONE
  9. TRAZODONE [Concomitant]
     Active Substance: TRAZODONE HYDROCHLORIDE
  10. CRANBERRY [Concomitant]
     Active Substance: CRANBERRY

REACTIONS (5)
  - Deep vein thrombosis [None]
  - International normalised ratio decreased [None]
  - Pain [None]
  - Swelling [None]
  - Fluid retention [None]

NARRATIVE: CASE EVENT DATE: 20200617
